FAERS Safety Report 12831938 (Version 1)
Quarter: 2016Q4

REPORT INFORMATION
  Report Type: Report from Study
  Country: US (occurrence: US)
  Receive Date: 20161010
  Receipt Date: 20161010
  Transmission Date: 20170207
  Serious: Yes (Hospitalization, Other)
  Sender: FDA-Public Use
  Company Number: US-ROCHE-1616716

PATIENT
  Age: 69 Year
  Sex: Female
  Weight: 58.2 kg

DRUGS (4)
  1. ABT-888 [Suspect]
     Active Substance: VELIPARIB
     Indication: OVARIAN EPITHELIAL CANCER
     Dosage: 12/OCT/2014, LAST DOSE ADMINISTERED
     Route: 048
     Dates: start: 20140602, end: 20141012
  2. CISPLATIN. [Suspect]
     Active Substance: CISPLATIN
     Indication: OVARIAN EPITHELIAL CANCER
     Dosage: 23/SEP/2014, LAST DOSE ADMINISTERED
     Route: 033
     Dates: start: 20140603, end: 20140923
  3. BEVACIZUMAB [Suspect]
     Active Substance: BEVACIZUMAB
     Indication: OVARIAN EPITHELIAL CANCER
     Dosage: 15 MG/KG?19/MAY/2015, LAST DOSE ADMINISTERED
     Route: 042
     Dates: start: 20140624
  4. PACLITAXEL. [Suspect]
     Active Substance: PACLITAXEL
     Indication: OVARIAN EPITHELIAL CANCER
     Dosage: 29/SEP/2014, LAST DOSE ADMINISTERED
     Route: 042
     Dates: start: 20140602, end: 20140929

REACTIONS (12)
  - Syncope [Recovering/Resolving]
  - Hypertension [Unknown]
  - Nausea [Unknown]
  - Vomiting [Unknown]
  - Small intestinal obstruction [Unknown]
  - Platelet count decreased [Unknown]
  - White blood cell count decreased [Unknown]
  - Lymphocyte count decreased [Unknown]
  - Neutrophil count decreased [Unknown]
  - Fatigue [Unknown]
  - Syncope [Unknown]
  - Small intestinal obstruction [Recovering/Resolving]

NARRATIVE: CASE EVENT DATE: 20150521
